FAERS Safety Report 6153839-9 (Version None)
Quarter: 2009Q2

REPORT INFORMATION
  Report Type: 
  Country: None (occurrence: None)
  Receive Date: 20090414
  Receipt Date: 20070925
  Transmission Date: 20091009
  Serious: Yes (Hospitalization, Other)
  Sender: FDA-Public Use
  Company Number: US-ASTRAZENECA-2006UW22569

PATIENT
  Age: 17153 Day
  Sex: Female
  Weight: 91.8 kg

DRUGS (32)
  1. SEROQUEL [Suspect]
     Indication: DEPRESSION
     Dosage: 25MG-200MG
     Route: 048
     Dates: start: 19980101
  2. EFFEXOR XR [Concomitant]
  3. LIPITOR [Concomitant]
  4. PERCOCET [Concomitant]
  5. VICODIN [Concomitant]
  6. VALIUM [Concomitant]
  7. PREMPRO [Concomitant]
  8. NEURONTIN [Concomitant]
  9. COMBIVENT [Concomitant]
  10. FLOVENT [Concomitant]
  11. OXYCONTIN [Concomitant]
     Dates: end: 20010328
  12. PEPTOBISMOL [Concomitant]
  13. SENOKOT [Concomitant]
  14. WELLBTRINE [Concomitant]
  15. ZANAFLEX [Concomitant]
  16. RESTORIL [Concomitant]
  17. TYLENOL [Concomitant]
  18. ZESTORETIC [Concomitant]
  19. DEMEROL [Concomitant]
  20. VERSED [Concomitant]
  21. ZANTAC [Concomitant]
  22. AMBIEN [Concomitant]
  23. BENADRYL [Concomitant]
  24. VITAMIN B-12 [Concomitant]
  25. PREMARIN [Concomitant]
  26. VYTORIN [Concomitant]
  27. DYAZIDE [Concomitant]
  28. REGLAN [Concomitant]
  29. REMERON [Concomitant]
  30. PHENERGAN [Concomitant]
  31. NEXIUM [Concomitant]
  32. PREVACID [Concomitant]

REACTIONS (24)
  - ANXIETY [None]
  - ASTHMA [None]
  - CHEST PAIN [None]
  - CONSTIPATION [None]
  - DERMATITIS [None]
  - DIABETES MELLITUS [None]
  - DUODENAL ULCER [None]
  - FAECALOMA [None]
  - GASTROOESOPHAGEAL REFLUX DISEASE [None]
  - HEADACHE [None]
  - HYPOXIA [None]
  - LUMBAR SPINAL STENOSIS [None]
  - MIGRAINE [None]
  - MUSCLE SPASMS [None]
  - NAUSEA [None]
  - NECK PAIN [None]
  - OBSESSIVE-COMPULSIVE DISORDER [None]
  - OCULAR HYPERTENSION [None]
  - OSTEOARTHRITIS [None]
  - PEPTIC ULCER [None]
  - PNEUMONITIS [None]
  - TENSION HEADACHE [None]
  - URINARY TRACT INFECTION [None]
  - VOMITING [None]
